FAERS Safety Report 20879585 (Version 4)
Quarter: 2022Q3

REPORT INFORMATION
  Report Type: Spontaneous
  Country: CA (occurrence: CA)
  Receive Date: 20220526
  Receipt Date: 20220805
  Transmission Date: 20221027
  Serious: Yes (Hospitalization, Other)
  Sender: FDA-Public Use
  Company Number: CA-PFIZER INC-202200742522

PATIENT
  Age: 59 Year
  Sex: Female

DRUGS (2)
  1. RUXIENCE [Suspect]
     Active Substance: RITUXIMAB-PVVR
     Dosage: 1000 MG DAY 1 AND 15
     Route: 042
     Dates: start: 20220518
  2. RUXIENCE [Suspect]
     Active Substance: RITUXIMAB-PVVR
     Dosage: 1000 MG 6 MONTHS (FREQUENCY: Q6MONTHS)
     Route: 042
     Dates: start: 20220518

REACTIONS (8)
  - Blood pressure systolic increased [Unknown]
  - Neck pain [Unknown]
  - Abdominal pain upper [Unknown]
  - Off label use [Unknown]
  - Hyperhidrosis [Unknown]
  - Malaise [Unknown]
  - Pyrexia [Unknown]
  - Pain [Unknown]

NARRATIVE: CASE EVENT DATE: 20220518
